FAERS Safety Report 23262489 (Version 1)
Quarter: 2023Q4

REPORT INFORMATION
  Report Type: Spontaneous
  Country: US (occurrence: US)
  Receive Date: 20231205
  Receipt Date: 20231205
  Transmission Date: 20240110
  Serious: No
  Sender: FDA-Public Use
  Company Number: US-PFIZER INC-202300426420

PATIENT
  Sex: Female

DRUGS (2)
  1. ABROCITINIB [Suspect]
     Active Substance: ABROCITINIB
     Indication: Dermatitis atopic
     Dosage: 100 MG, DAILY (IN THE AM)
  2. ABROCITINIB [Suspect]
     Active Substance: ABROCITINIB
     Dosage: 100 MG, 2X/DAY (SECOND 100MG DOSE AT ABOUT 3PM DAILY)

REACTIONS (2)
  - Therapeutic product effect incomplete [Recovered/Resolved]
  - Off label use [Unknown]
